FAERS Safety Report 16454422 (Version 1)
Quarter: 2019Q2

REPORT INFORMATION
  Report Type: Spontaneous
  Country: US (occurrence: US)
  Receive Date: 20190619
  Receipt Date: 20190619
  Transmission Date: 20190711
  Serious: No
  Sender: FDA-Public Use
  Company Number: US-ROCHE-2224746

PATIENT
  Sex: Female

DRUGS (2)
  1. ACTEMRA [Suspect]
     Active Substance: TOCILIZUMAB
     Indication: RHEUMATOID ARTHRITIS
     Dosage: STOP DATE: ONGOING
     Route: 058
     Dates: start: 20181102
  2. ACTEMRA [Suspect]
     Active Substance: TOCILIZUMAB
     Dosage: STOP DATE: ONGOING
     Route: 058
     Dates: start: 20181119

REACTIONS (2)
  - Injection site irritation [Unknown]
  - Injection site erythema [Unknown]
